FAERS Safety Report 21928872 (Version 2)
Quarter: 2023Q1

REPORT INFORMATION
  Report Type: Spontaneous
  Country: US (occurrence: US)
  Receive Date: 20230131
  Receipt Date: 20230131
  Transmission Date: 20230417
  Serious: No
  Sender: FDA-Public Use
  Company Number: US-ABBVIE-4284018

PATIENT
  Sex: Female

DRUGS (1)
  1. SYNTHROID [Suspect]
     Active Substance: LEVOTHYROXINE SODIUM
     Indication: Hypothyroidism
     Dosage: WEEK 1,2 AND 3- 75MCG FOR 6 DAYS AND 50MCG ON THE 7TH DAY
     Route: 048

REACTIONS (1)
  - Blood thyroid stimulating hormone abnormal [Unknown]
